FAERS Safety Report 9468947 (Version 1)
Quarter: 2013Q3

REPORT INFORMATION
  Report Type: Spontaneous
  Country: NL (occurrence: None)
  Receive Date: 20130815
  Receipt Date: 20130815
  Transmission Date: 20140515
  Serious: Yes (Hospitalization)
  Sender: FDA-Public Use
  Company Number: AUR-APL-2013-06636

PATIENT
  Age: 84 Year
  Sex: Female

DRUGS (10)
  1. MIRTAZAPINE (MIRTAZAPINE) [Suspect]
     Dates: start: 1950
  2. MIRTAZAPINE (MIRTAZAPINE) [Suspect]
     Dates: start: 1950
  3. SERTRALINE (SERTRALINE) [Suspect]
     Dates: start: 20130723, end: 20130726
  4. SERTRALINE (SERTRALINE) [Suspect]
     Dates: start: 20130723, end: 20130726
  5. PRAXITEN PLIVA (OXAZEPAM) (OXAZEPAM) [Concomitant]
  6. ACETYLSALICYLIC ACID (ACETYLSALICYLIC ACID) [Concomitant]
  7. THIAMINE (THIAMINE) [Concomitant]
  8. HYDROCHLOROTHIAZIDE (HYDROCHLOROTHIAZIDE) [Concomitant]
  9. METOPROLOL (METOPROLOL) [Concomitant]
  10. PANTOZOL (PANTOPRAZOLE SODIUIM SESQUIHYDRATE) [Concomitant]

REACTIONS (2)
  - Hyponatraemia [None]
  - Drug interaction [None]
